FAERS Safety Report 12113836 (Version 1)
Quarter: 2016Q1

REPORT INFORMATION
  Report Type: Spontaneous
  Country: US (occurrence: None)
  Receive Date: 20160224
  Receipt Date: 20160224
  Transmission Date: 20160526
  Serious: Yes (Other)
  Sender: FDA-Public Use
  Company Number: None

PATIENT

DRUGS (2)
  1. SODIUM IODINE I-131 4 MCI MALLINCKRODT [Suspect]
     Active Substance: SODIUM IODIDE I-131
     Indication: THYROID CANCER
  2. SODIUM IODINE I-131 4 MCI MALLINCKRODT [Suspect]
     Active Substance: SODIUM IODIDE I-131
     Indication: HYPERTHYROIDISM

REACTIONS (2)
  - Product physical issue [None]
  - Product container issue [None]

NARRATIVE: CASE EVENT DATE: 20160222
